FAERS Safety Report 8846661 (Version 1)
Quarter: 2012Q4

REPORT INFORMATION
  Report Type: 
  Country: US (occurrence: US)
  Receive Date: 20121017
  Receipt Date: 20121017
  Transmission Date: 20130627
  Serious: Yes (Other)
  Sender: FDA-Public Use
  Company Number: US-PFIZER INC-2012257434

PATIENT
  Age: 42 Year
  Sex: Female
  Weight: 106.58 kg

DRUGS (4)
  1. NEURONTIN [Suspect]
     Indication: BACK DISORDER
     Dosage: 400 mg (half of 800mg/tablet), 3x/day
     Route: 048
     Dates: start: 2010, end: 201210
  2. NEURONTIN [Suspect]
     Indication: FIBROMYALGIA
  3. LYRICA [Concomitant]
     Dosage: 50 mg, 3x/day
  4. LASIX [Concomitant]
     Dosage: UNK

REACTIONS (7)
  - Blood calcium decreased [Unknown]
  - Nausea [Not Recovered/Not Resolved]
  - Pain [Not Recovered/Not Resolved]
  - Middle insomnia [Not Recovered/Not Resolved]
  - Pain in extremity [Not Recovered/Not Resolved]
  - Musculoskeletal pain [Not Recovered/Not Resolved]
  - Off label use [Unknown]
